FAERS Safety Report 13109005 (Version 1)
Quarter: 2017Q1

REPORT INFORMATION
  Report Type: Spontaneous
  Country: US (occurrence: US)
  Receive Date: 20170112
  Receipt Date: 20170112
  Transmission Date: 20170428
  Serious: Yes (Other)
  Sender: FDA-Public Use
  Company Number: None

PATIENT
  Age: 91 Year
  Sex: Female
  Weight: 64.86 kg

DRUGS (10)
  1. FUROSEMIDE. [Suspect]
     Active Substance: FUROSEMIDE
     Indication: HYPERTENSION
     Route: 048
     Dates: start: 2009, end: 20161221
  2. FISH OIL [Concomitant]
     Active Substance: FISH OIL
  3. WALKER TO ASSIST AMBULATION [Concomitant]
  4. BABY OIL [Concomitant]
     Active Substance: MINERAL OIL
  5. TOPROL XL [Suspect]
     Active Substance: METOPROLOL SUCCINATE
     Indication: HYPERTENSION
     Dosage: ?          QUANTITY:?TCPROL : 5?0 TRIM, 11.5%;?
     Route: 048
     Dates: start: 2003, end: 2009
  6. EXCEDRIN [Concomitant]
     Active Substance: ACETAMINOPHEN\ASPIRIN\CAFFEINE
  7. MULTI-VITS WITH IRON [Concomitant]
  8. ASPIRIN. [Concomitant]
     Active Substance: ASPIRIN
  9. BENADRYL [Concomitant]
     Active Substance: DIPHENHYDRAMINE HYDROCHLORIDE
  10. A+D OINTMENT [Concomitant]

REACTIONS (6)
  - Erythema of eyelid [None]
  - Lip swelling [None]
  - Cheilitis [None]
  - Hypersensitivity [None]
  - Skin fissures [None]
  - Rash [None]

NARRATIVE: CASE EVENT DATE: 20161122
